FAERS Safety Report 5896523-9 (Version None)
Quarter: 2008Q3

REPORT INFORMATION
  Report Type: 
  Country: None (occurrence: None)
  Receive Date: 20080924
  Receipt Date: 20070802
  Transmission Date: 20090109
  Serious: Yes (Other)
  Sender: FDA-Public Use
  Company Number: US-BAYER-200712190BWH

PATIENT
  Age: 43 Year
  Sex: Female

DRUGS (8)
  1. AVELOX [Suspect]
     Indication: BRONCHITIS
     Route: 048
     Dates: start: 20070705
  2. WELLBUTRIN XL [Concomitant]
     Dates: start: 20010101
  3. MOBIC [Concomitant]
     Dates: start: 20040101
  4. ALLEGRA-D [Concomitant]
  5. PREVACID [Concomitant]
  6. LORTAB [Concomitant]
  7. FLEXERIL [Concomitant]
  8. SOMA [Concomitant]

REACTIONS (3)
  - ANAPHYLACTIC REACTION [None]
  - DYSPNOEA [None]
  - RASH GENERALISED [None]
